FAERS Safety Report 6107976-5 (Version None)
Quarter: 2009Q1

REPORT INFORMATION
  Report Type: 
  Country: None (occurrence: None)
  Receive Date: 20090309
  Receipt Date: 20090305
  Transmission Date: 20090719
  Serious: Yes (Death)
  Sender: FDA-Public Use
  Company Number: CH-ASTRAZENECA-2009PK00779

PATIENT
  Age: 83 Year
  Sex: Male

DRUGS (5)
  1. ZESTORETIC [Suspect]
     Indication: PULMONARY ARTERIAL HYPERTENSION
     Dosage: 12.5/10 MG
     Route: 048
  2. METFIN [Concomitant]
     Route: 048
  3. SERETIDE [Concomitant]
     Route: 055
  4. SPIRIVA [Concomitant]
     Route: 055
  5. ZOLPIDEM [Concomitant]
     Route: 048

REACTIONS (2)
  - CARDIO-RESPIRATORY ARREST [None]
  - HYPERKALAEMIA [None]
